FAERS Safety Report 15343758 (Version 2)
Quarter: 2018Q4

REPORT INFORMATION
  Report Type: Report from Study
  Country: JP (occurrence: JP)
  Receive Date: 20180903
  Receipt Date: 20181024
  Transmission Date: 20190204
  Serious: Yes (Hospitalization, Other)
  Sender: FDA-Public Use
  Company Number: JP-BIOGEN-2018BI00519633

PATIENT
  Age: 3 Year
  Sex: Male
  Weight: 10.4 kg

DRUGS (29)
  1. SULBACILLIN [Concomitant]
     Active Substance: AMPICILLIN SODIUM\SULBACTAM SODIUM
     Route: 050
     Dates: start: 20171122, end: 20171122
  2. TSUMURA HANGEKOBOKUTO EXTRACT GRANULES FOR ETHICAL USE [Concomitant]
     Indication: SPINAL MUSCULAR ATROPHY
     Route: 048
     Dates: start: 20170912
  3. ISOZOL [Concomitant]
     Active Substance: THIAMYLAL SODIUM
     Dosage: ABOUT 50 MG / DAY
     Route: 050
     Dates: start: 20171018, end: 20171018
  4. SOSEGON [Concomitant]
     Active Substance: PENTAZOCINE
     Indication: ANAESTHESIA PROCEDURE
     Dosage: ABOUT 5 MG / DAY
     Route: 050
     Dates: start: 20170920, end: 20170920
  5. SOSEGON [Concomitant]
     Active Substance: PENTAZOCINE
     Dosage: ABOUT 5 MG / DAY
     Route: 050
     Dates: start: 20171122, end: 20171122
  6. SULBACILLIN [Concomitant]
     Active Substance: AMPICILLIN SODIUM\SULBACTAM SODIUM
     Indication: PROPHYLAXIS
     Route: 050
     Dates: start: 20170920, end: 20170920
  7. CARBOCISTEINE [Concomitant]
     Active Substance: CARBOCYSTEINE
     Indication: SPINAL MUSCULAR ATROPHY
     Route: 048
     Dates: start: 20170912
  8. MEPTIN [Concomitant]
     Active Substance: PROCATEROL HYDROCHLORIDE
     Indication: SPINAL MUSCULAR ATROPHY
     Route: 048
     Dates: start: 20170912
  9. XYZAL [Concomitant]
     Active Substance: LEVOCETIRIZINE DIHYDROCHLORIDE
     Indication: SPINAL MUSCULAR ATROPHY
     Route: 048
     Dates: start: 20170912
  10. MAGNESIUM OXIDE. [Concomitant]
     Active Substance: MAGNESIUM OXIDE
     Indication: SPINAL MUSCULAR ATROPHY
     Route: 048
     Dates: start: 20170912
  11. GLYCERIN. [Concomitant]
     Active Substance: GLYCERIN
     Indication: SPINAL MUSCULAR ATROPHY
     Route: 054
     Dates: start: 20170912
  12. MEPTIN [Concomitant]
     Active Substance: PROCATEROL HYDROCHLORIDE
     Indication: SPINAL MUSCULAR ATROPHY
     Route: 055
     Dates: start: 20170912
  13. SPINRAZA [Suspect]
     Active Substance: NUSINERSEN
     Indication: SPINAL MUSCULAR ATROPHY
     Route: 037
     Dates: start: 20170920, end: 20170920
  14. ISOZOL [Concomitant]
     Active Substance: THIAMYLAL SODIUM
     Dosage: ABOUT 50 MG / DAY
     Route: 050
     Dates: start: 20171004, end: 20171004
  15. ISOZOL [Concomitant]
     Active Substance: THIAMYLAL SODIUM
     Dosage: ABOUT 50 MG / DAY
     Route: 050
     Dates: start: 20171122, end: 20171122
  16. SULBACILLIN [Concomitant]
     Active Substance: AMPICILLIN SODIUM\SULBACTAM SODIUM
     Route: 050
     Dates: start: 20171018, end: 20171018
  17. CLARITHROMYCIN. [Concomitant]
     Active Substance: CLARITHROMYCIN
     Indication: SPINAL MUSCULAR ATROPHY
     Route: 048
     Dates: start: 20170912
  18. SINGULAIR [Concomitant]
     Active Substance: MONTELUKAST SODIUM
     Indication: SPINAL MUSCULAR ATROPHY
     Dosage: 1 PACKET PER DOSE (1 PACKET PER DAY)
     Route: 048
     Dates: start: 20170912
  19. SPINRAZA [Suspect]
     Active Substance: NUSINERSEN
     Route: 037
     Dates: start: 20171122, end: 20171122
  20. PULMICORT TURBUHALER [Concomitant]
     Active Substance: BUDESONIDE
     Indication: SPINAL MUSCULAR ATROPHY
     Route: 055
     Dates: start: 20170912
  21. SPINRAZA [Suspect]
     Active Substance: NUSINERSEN
     Route: 037
     Dates: start: 20171018, end: 20171018
  22. SOSEGON [Concomitant]
     Active Substance: PENTAZOCINE
     Dosage: ABOUT 5 MG / DAY
     Route: 050
     Dates: start: 20171004, end: 20171004
  23. SULBACILLIN [Concomitant]
     Active Substance: AMPICILLIN SODIUM\SULBACTAM SODIUM
     Route: 050
     Dates: start: 20171004, end: 20171004
  24. SPINRAZA [Suspect]
     Active Substance: NUSINERSEN
     Route: 037
     Dates: start: 20171004, end: 20171004
  25. ISOZOL [Concomitant]
     Active Substance: THIAMYLAL SODIUM
     Indication: ANAESTHESIA PROCEDURE
     Dosage: ABOUT 50 MG / DAY
     Route: 050
     Dates: start: 20170920, end: 20170920
  26. SOSEGON [Concomitant]
     Active Substance: PENTAZOCINE
     Dosage: ABOUT 5 MG / DAY
     Route: 050
     Dates: start: 20171018, end: 20171018
  27. AMBROXOL HYDROCHLORIDE [Concomitant]
     Active Substance: AMBROXOL HYDROCHLORIDE
     Indication: SPINAL MUSCULAR ATROPHY
     Route: 048
     Dates: start: 20170912
  28. TSUMURA DAIKENCHUTO EXTRACT GRANULES FOR ETHICAL USE [Concomitant]
     Active Substance: HERBALS
     Indication: SPINAL MUSCULAR ATROPHY
     Route: 048
     Dates: start: 20170912
  29. INTAL [Concomitant]
     Active Substance: CROMOLYN SODIUM
     Indication: SPINAL MUSCULAR ATROPHY
     Route: 055
     Dates: start: 20170912

REACTIONS (4)
  - Pneumonia [Recovered/Resolved]
  - Pyrexia [Recovered/Resolved]
  - Pneumonia [Recovered/Resolved]
  - Respiratory failure [Recovered/Resolved]

NARRATIVE: CASE EVENT DATE: 20171110
